FAERS Safety Report 9599561 (Version 2)
Quarter: 2013Q4

REPORT INFORMATION
  Report Type: Spontaneous
  Country: US (occurrence: US)
  Receive Date: 20131004
  Receipt Date: 20131004
  Transmission Date: 20140711
  Serious: No
  Sender: FDA-Public Use
  Company Number: US-AMGEN-USASP2013026482

PATIENT
  Age: 60 Year
  Sex: Female
  Weight: 99.77 kg

DRUGS (14)
  1. ENBREL [Suspect]
     Indication: PSORIATIC ARTHROPATHY
     Dosage: 50 MG, QWK, EVERY FRIDAY AS DIRECTED
     Route: 058
     Dates: start: 20130305
  2. PROAIR HFA [Concomitant]
     Dosage: UNK
  3. ADVAIR HFA [Concomitant]
     Dosage: 115/21
  4. ACCOLATE [Concomitant]
     Dosage: 20 MG, UNK
  5. ATIVAN [Concomitant]
     Dosage: 1 MG, UNK
  6. SYNTHROID [Concomitant]
     Dosage: 50 MUG, UNK
  7. PRILOSEC                           /00661201/ [Concomitant]
     Dosage: 40 MG, UNK
  8. AVAPRO [Concomitant]
     Dosage: 75 MG, UNK
  9. TRIAMTEREEN/HYDROCHLOOTTHIAZIDE [Concomitant]
     Dosage: 37.5-25
  10. AMBIEN [Concomitant]
     Dosage: 10 MG, UNK
  11. LIPITOR [Concomitant]
     Dosage: 40 MG, UNK
  12. NORVASC [Concomitant]
     Dosage: 5 MG, UNK
  13. PERCOCET                           /00446701/ [Concomitant]
     Dosage: 7.5-325 M
  14. ALBUTEROL                          /00139501/ [Concomitant]
     Dosage: 0.5 %, UNK

REACTIONS (4)
  - Productive cough [Recovered/Resolved]
  - Nasopharyngitis [Unknown]
  - Injection site erythema [Recovering/Resolving]
  - Lower respiratory tract infection [Recovered/Resolved]
